FAERS Safety Report 10191136 (Version 1)
Quarter: 2014Q2

REPORT INFORMATION
  Report Type: Spontaneous
  Country: DE (occurrence: DE)
  Receive Date: 20140523
  Receipt Date: 20140523
  Transmission Date: 20141212
  Serious: Yes (Other)
  Sender: FDA-Public Use
  Company Number: DE-ASTELLAS-2014EU005509

PATIENT
  Sex: Female

DRUGS (2)
  1. ADVAGRAF [Suspect]
     Indication: RENAL TRANSPLANT
     Dosage: UNK, UNKNOWN FREQ.
     Route: 065
     Dates: start: 20110913
  2. ADVAGRAF [Suspect]
     Dosage: 10 UNK, ONCE DAILY
     Route: 065

REACTIONS (3)
  - Diabetes mellitus [Unknown]
  - Lipids increased [Unknown]
  - Hypertension [Unknown]
